FAERS Safety Report 6703696-4 (Version None)
Quarter: 2010Q2

REPORT INFORMATION
  Report Type: 
  Country: None (occurrence: None)
  Receive Date: 20100430
  Receipt Date: 20100429
  Transmission Date: 20101027
  Serious: Yes (Hospitalization)
  Sender: FDA-Public Use
  Company Number: DE-SANOFI-AVENTIS-2010SA024670

PATIENT
  Age: 78 Year
  Sex: Female
  Weight: 72 kg

DRUGS (3)
  1. CLEXANE [Suspect]
     Route: 058
     Dates: start: 20091119, end: 20091201
  2. FLUPIRTINE MALEATE [Suspect]
     Route: 048
     Dates: start: 20091119, end: 20091201
  3. METAMIZOLE [Suspect]
     Dosage: DAILY DOSE: 4 DF DOSAGE FORM EVERY DAYS
     Route: 048
     Dates: start: 20091119, end: 20091201

REACTIONS (2)
  - JAUNDICE [None]
  - TRANSAMINASES INCREASED [None]
